FAERS Safety Report 9484757 (Version 3)
Quarter: 2013Q4

REPORT INFORMATION
  Report Type: Spontaneous
  Country: US (occurrence: US)
  Receive Date: 20130828
  Receipt Date: 20131205
  Transmission Date: 20140711
  Serious: Yes (Hospitalization)
  Sender: FDA-Public Use
  Company Number: US-GLAXOSMITHKLINE-A1038949A

PATIENT
  Age: 77 Year
  Sex: Male
  Weight: 158 kg

DRUGS (7)
  1. JALYN [Suspect]
     Indication: MICTURITION DISORDER
     Dosage: 1CAP PER DAY
     Route: 048
     Dates: start: 201202, end: 201308
  2. METFORMIN [Concomitant]
  3. ONGLYZA [Concomitant]
  4. LISINOPRIL [Concomitant]
  5. ASPIRIN [Concomitant]
  6. LUTEIN [Concomitant]
  7. ADVIL PM [Concomitant]

REACTIONS (5)
  - Blood urine present [Recovering/Resolving]
  - Bladder catheterisation [Unknown]
  - Infection [Recovering/Resolving]
  - Bladder disorder [Recovering/Resolving]
  - Dysuria [Recovering/Resolving]
